FAERS Safety Report 7622130-3 (Version None)
Quarter: 2011Q3

REPORT INFORMATION
  Report Type: 
  Country: None (occurrence: None)
  Receive Date: 20110720
  Receipt Date: 20110418
  Transmission Date: 20111222
  Serious: Yes (Hospitalization, Other)
  Sender: FDA-Public Use
  Company Number: US-BAYER-2010-004368

PATIENT
  Age: 26 Year
  Sex: Female
  Weight: 136.5 kg

DRUGS (13)
  1. DROSPIRENONE AND ETHINYL ESTRADIOL [Suspect]
     Indication: PRODUCT USED FOR UNKNOWN INDICATION
     Dosage: UNK
     Route: 048
     Dates: start: 20020101, end: 20081201
  2. ALBUTEROL SULFATE AUTOHALER [Concomitant]
  3. YAZ [Suspect]
     Indication: PRODUCT USED FOR UNKNOWN INDICATION
     Dosage: UNK
     Route: 048
     Dates: start: 20020101
  4. PREDNISONE [Concomitant]
  5. OXACILLIN [Concomitant]
     Dosage: UNK
  6. YASMIN [Suspect]
     Indication: PRODUCT USED FOR UNKNOWN INDICATION
     Dosage: UNK
     Route: 048
     Dates: start: 20020101, end: 20081201
  7. VICODIN [Concomitant]
  8. ROBINUL [Concomitant]
  9. COUGH SYRUP [Concomitant]
  10. AZMACORT [Concomitant]
  11. LEVAQUIN [Concomitant]
     Dosage: UNK
  12. ZYRTEC [Concomitant]
  13. M.V.I. [Concomitant]

REACTIONS (9)
  - BILIARY DYSKINESIA [None]
  - PAIN [None]
  - CHOLESTEROSIS [None]
  - INJURY [None]
  - DEEP VEIN THROMBOSIS [None]
  - PULMONARY EMBOLISM [None]
  - BILIARY COLIC [None]
  - GALLBLADDER DISORDER [None]
  - CHOLECYSTITIS CHRONIC [None]
